FAERS Safety Report 4703223-7 (Version None)
Quarter: 2005Q2

REPORT INFORMATION
  Report Type: 
  Country: None (occurrence: None)
  Receive Date: 20050629
  Receipt Date: 20050621
  Transmission Date: 20051028
  Serious: Yes (Life-Threatening, Hospitalization)
  Sender: FDA-Public Use
  Company Number: US-JNJFOC-20050406770

PATIENT
  Sex: Female

DRUGS (18)
  1. REMICADE [Suspect]
     Indication: RHEUMATOID ARTHRITIS
     Route: 042
  2. PREDNISONE TAB [Concomitant]
     Route: 049
  3. NEXIUM [Concomitant]
  4. LASIX [Concomitant]
  5. ZYRTEC [Concomitant]
  6. HYDROCHLOROTHIAZIDE [Concomitant]
  7. NEURONTIN [Concomitant]
  8. ACTONEL [Concomitant]
  9. POTASSIUM CHLORIDE [Concomitant]
  10. CALCIUM GLUCONATE [Concomitant]
  11. MULTI-VITAMIN [Concomitant]
  12. MULTI-VITAMIN [Concomitant]
  13. MULTI-VITAMIN [Concomitant]
  14. MULTI-VITAMIN [Concomitant]
  15. MULTI-VITAMIN [Concomitant]
  16. MULTI-VITAMIN [Concomitant]
  17. MULTI-VITAMIN [Concomitant]
  18. MULTI-VITAMIN [Concomitant]

REACTIONS (17)
  - ANAEMIA [None]
  - ATRIAL FIBRILLATION [None]
  - BACTERAEMIA [None]
  - CHRONIC RESPIRATORY FAILURE [None]
  - DIAPHRAGMATIC PARALYSIS [None]
  - GASTRITIS [None]
  - GLUCOSE TOLERANCE IMPAIRED [None]
  - GUILLAIN-BARRE SYNDROME [None]
  - HUMERUS FRACTURE [None]
  - HYPERNATRAEMIA [None]
  - JOINT DISLOCATION [None]
  - MENTAL STATUS CHANGES [None]
  - PNEUMONIA KLEBSIELLA [None]
  - STAPHYLOCOCCAL INFECTION [None]
  - SUPRAVENTRICULAR TACHYCARDIA [None]
  - THROMBOCYTOPENIA [None]
  - VASCULITIS [None]
